APPROVED DRUG PRODUCT: FLUNISOLIDE
Active Ingredient: FLUNISOLIDE
Strength: 0.025MG/SPRAY
Dosage Form/Route: SPRAY, METERED;NASAL
Application: A074805 | Product #001 | TE Code: AB
Applicant: BAUSCH HEALTH US LLC
Approved: Feb 20, 2002 | RLD: No | RS: Yes | Type: RX